FAERS Safety Report 24804778 (Version 8)
Quarter: 2025Q2

REPORT INFORMATION
  Report Type: Report from Study
  Country: US (occurrence: US)
  Receive Date: 20250103
  Receipt Date: 20250514
  Transmission Date: 20250717
  Serious: Yes (Hospitalization, Other)
  Sender: TAKEDA
  Company Number: US-TAKEDA-2024TUS119843

PATIENT
  Age: 76 Year
  Sex: Male

DRUGS (28)
  1. FRUQUINTINIB [Suspect]
     Active Substance: FRUQUINTINIB
     Indication: Rectal cancer
  2. FRUQUINTINIB [Suspect]
     Active Substance: FRUQUINTINIB
     Indication: Bladder cancer
  3. FRUQUINTINIB [Suspect]
     Active Substance: FRUQUINTINIB
     Indication: Metastasis
  4. FRUQUINTINIB [Suspect]
     Active Substance: FRUQUINTINIB
  5. AMLODIPINE BESYLATE [Concomitant]
     Active Substance: AMLODIPINE BESYLATE
  6. ASPIRIN [Concomitant]
     Active Substance: ASPIRIN
  7. CALCIUM CARBONATE\CHOLECALCIFEROL [Concomitant]
     Active Substance: CALCIUM CARBONATE\CHOLECALCIFEROL
  8. DICLOFENAC SODIUM [Concomitant]
     Active Substance: DICLOFENAC SODIUM
  9. ELIQUIS [Concomitant]
     Active Substance: APIXABAN
  10. FERROUS SULFATE [Concomitant]
     Active Substance: FERROUS SULFATE
  11. FINASTERIDE [Concomitant]
     Active Substance: FINASTERIDE
  12. LOPERAMIDE HYDROCHLORIDE [Concomitant]
     Active Substance: LOPERAMIDE HYDROCHLORIDE
  13. MAGNESIUM GLUCONATE [Concomitant]
     Active Substance: MAGNESIUM GLUCONATE
  14. METOPROLOL TARTRATE [Concomitant]
     Active Substance: METOPROLOL TARTRATE
  15. MICONAZOLE [Concomitant]
     Active Substance: MICONAZOLE
  16. ZOFRAN [Concomitant]
     Active Substance: ONDANSETRON HYDROCHLORIDE
  17. PANTOPRAZOLE SODIUM [Concomitant]
     Active Substance: PANTOPRAZOLE SODIUM
  18. PROCHLORPERAZINE MALEATE [Concomitant]
     Active Substance: PROCHLORPERAZINE MALEATE
  19. ROSUVASTATIN CALCIUM [Concomitant]
     Active Substance: ROSUVASTATIN CALCIUM
  20. TAMSULOSIN HYDROCHLORIDE [Concomitant]
     Active Substance: TAMSULOSIN HYDROCHLORIDE
  21. VITAMIN B12 [Concomitant]
     Active Substance: CYANOCOBALAMIN
  22. GABAPENTIN [Concomitant]
     Active Substance: GABAPENTIN
  23. BIOFREEZE [Concomitant]
     Active Substance: MENTHOL
  24. MUCINEX DM [Concomitant]
     Active Substance: DEXTROMETHORPHAN HYDROBROMIDE\GUAIFENESIN
  25. OFLOXACIN [Concomitant]
     Active Substance: OFLOXACIN
  26. OREGANO LEAF OIL [Concomitant]
     Active Substance: OREGANO LEAF OIL
  27. MAGNESIUM OXIDE [Concomitant]
     Active Substance: MAGNESIUM OXIDE
  28. ONDANSETRON [Concomitant]
     Active Substance: ONDANSETRON

REACTIONS (23)
  - Bacteraemia [Unknown]
  - Urinary tract infection [Unknown]
  - Haematological infection [Recovering/Resolving]
  - Metastases to liver [Not Recovered/Not Resolved]
  - Neuropathy peripheral [Not Recovered/Not Resolved]
  - Metastases to bone [Not Recovered/Not Resolved]
  - Abdominal pain upper [Recovering/Resolving]
  - Dizziness [Recovering/Resolving]
  - Headache [Not Recovered/Not Resolved]
  - Glossodynia [Unknown]
  - Diarrhoea [Unknown]
  - Abdominal pain [Recovering/Resolving]
  - Flatulence [Unknown]
  - Stoma site irritation [Unknown]
  - Fatigue [Recovering/Resolving]
  - Musculoskeletal chest pain [Unknown]
  - Dysphonia [Unknown]
  - Aphonia [Recovering/Resolving]
  - Oral pain [Unknown]
  - Pain in extremity [Not Recovered/Not Resolved]
  - Balance disorder [Not Recovered/Not Resolved]
  - Tremor [Not Recovered/Not Resolved]
  - Back pain [Unknown]

NARRATIVE: CASE EVENT DATE: 20241119
